FAERS Safety Report 17533135 (Version 3)
Quarter: 2020Q1

REPORT INFORMATION
  Report Type: Spontaneous
  Country: BR (occurrence: BR)
  Receive Date: 20200312
  Receipt Date: 20200319
  Transmission Date: 20200409
  Serious: No
  Sender: FDA-Public Use
  Company Number: BR-PFIZER INC-2020101469

PATIENT
  Age: 68 Year
  Sex: Female
  Weight: 55 kg

DRUGS (2)
  1. XALATAN [Suspect]
     Active Substance: LATANOPROST
     Indication: ANGLE CLOSURE GLAUCOMA
     Dosage: ONE DROP IN EACH EYE EVERY NIGHT
     Dates: start: 2018
  2. OPTI FREE [Concomitant]
     Active Substance: PANCRELIPASE\TYROSINE
     Dosage: UNK

REACTIONS (6)
  - Visual acuity reduced [Not Recovered/Not Resolved]
  - Product storage error [Unknown]
  - Off label use [Unknown]
  - Product use in unapproved indication [Unknown]
  - Eyelid disorder [Not Recovered/Not Resolved]
  - Poor quality product administered [Unknown]

NARRATIVE: CASE EVENT DATE: 2018
